FAERS Safety Report 26151487 (Version 1)
Quarter: 2025Q4

REPORT INFORMATION
  Report Type: Spontaneous
  Country: EU (occurrence: EU)
  Receive Date: 20251212
  Receipt Date: 20251212
  Transmission Date: 20260117
  Serious: Yes (Other)
  Sender: AMGEN
  Company Number: EU-AMGEN-BELSP2025242933

PATIENT
  Age: 29 Year
  Sex: Male

DRUGS (8)
  1. BLINATUMOMAB [Suspect]
     Active Substance: BLINATUMOMAB
     Indication: Acute lymphocytic leukaemia recurrent
     Dosage: UNK (FIRST CYCLE)
     Route: 065
     Dates: start: 202309
  2. PREDNISONE [Concomitant]
     Active Substance: PREDNISONE
     Indication: Acute lymphocytic leukaemia
     Dosage: UNK
     Dates: start: 2022
  3. RITUXIMAB [Concomitant]
     Active Substance: RITUXIMAB
     Indication: Acute lymphocytic leukaemia
     Dosage: UNK
     Route: 065
     Dates: start: 2022
  4. RITUXIMAB [Concomitant]
     Active Substance: RITUXIMAB
     Indication: Thrombotic microangiopathy
     Dosage: 375 MILLIGRAM/SQ. METER, QWK (4 CYCLES)
     Route: 065
     Dates: start: 202411
  5. VINCRISTINE [Concomitant]
     Active Substance: VINCRISTINE
     Indication: Acute lymphocytic leukaemia
     Dosage: UNK
     Dates: start: 2022
  6. DAUNORUBICIN [Concomitant]
     Active Substance: DAUNORUBICIN
     Indication: Acute lymphocytic leukaemia
     Dosage: UNK
     Dates: start: 2022
  7. PEG/L-ASPARAGINASE [Concomitant]
     Active Substance: PEGASPARGASE
     Indication: Acute lymphocytic leukaemia
     Dosage: UNK
     Dates: start: 2022
  8. METHOTREXATE [Concomitant]
     Active Substance: METHOTREXATE
     Indication: Acute lymphocytic leukaemia
     Dosage: UNK (HIGH DOSE)
     Dates: start: 202210

REACTIONS (7)
  - Acute graft versus host disease in skin [Unknown]
  - Thrombotic microangiopathy [Recovering/Resolving]
  - End stage renal disease [Unknown]
  - Pneumonia viral [Unknown]
  - Therapy non-responder [Unknown]
  - Hypertension [Unknown]
  - Viral upper respiratory tract infection [Recovering/Resolving]

NARRATIVE: CASE EVENT DATE: 20230101
